FAERS Safety Report 5062481-2 (Version None)
Quarter: 2006Q3

REPORT INFORMATION
  Report Type: 
  Country: None (occurrence: None)
  Receive Date: 20060726
  Receipt Date: 20060717
  Transmission Date: 20061208
  Serious: Yes (Congenital Anomaly)
  Sender: FDA-Public Use
  Company Number: DE-ABBOTT-06P-062-0338400-00

PATIENT

DRUGS (1)
  1. ERGENYL CHRONO TABLETS [Suspect]
     Indication: TRANSMISSION OF DRUG VIA SEMEN

REACTIONS (5)
  - CLEFT LIP [None]
  - CLEFT PALATE [None]
  - CONGENITAL JAW MALFORMATION [None]
  - TRISOMY 21 [None]
  - VERTEBRAL WEDGING [None]
